FAERS Safety Report 8788810 (Version 2)
Quarter: 2012Q4

REPORT INFORMATION
  Report Type: 
  Country: GB (occurrence: GB)
  Receive Date: 20120917
  Receipt Date: 20121022
  Transmission Date: 20130627
  Serious: Yes (Hospitalization, Other)
  Sender: FDA-Public Use
  Company Number: GB-009507513-1209GBR004743

PATIENT
  Age: 94 Year
  Sex: Female

DRUGS (10)
  1. SIMVASTATIN [Suspect]
     Indication: HYPERCHOLESTEROLAEMIA
     Dosage: 40 mg, hs
     Route: 048
     Dates: start: 20100426
  2. SIMVASTATIN [Interacting]
     Dosage: 20 mg, UNK
     Route: 048
  3. SLOZEM [Interacting]
     Indication: HYPERTENSION
     Dosage: 120 mg, qd
     Route: 048
     Dates: start: 20100426
  4. ALLOPURINOL [Concomitant]
  5. ASPIRIN [Concomitant]
  6. FERROUS SULFATE [Concomitant]
  7. FUROSEMIDE [Concomitant]
  8. MIRTAZAPINE [Concomitant]
  9. OMEPRAZOLE [Concomitant]
  10. RAMIPRIL [Concomitant]

REACTIONS (7)
  - Contusion [Recovering/Resolving]
  - Blood creatine phosphokinase increased [Unknown]
  - Drug interaction [Unknown]
  - Fall [Unknown]
  - Mobility decreased [Recovering/Resolving]
  - Rhabdomyolysis [Recovering/Resolving]
  - Swelling face [Recovering/Resolving]
